FAERS Safety Report 16439139 (Version 1)
Quarter: 2019Q2

REPORT INFORMATION
  Report Type: Spontaneous
  Country: US (occurrence: US)
  Receive Date: 20190617
  Receipt Date: 20190617
  Transmission Date: 20190711
  Serious: Yes (Hospitalization)
  Sender: FDA-Public Use
  Company Number: US-PFIZER INC-2019248166

PATIENT
  Age: 44 Year
  Sex: Male
  Weight: 107.9 kg

DRUGS (19)
  1. VIVITROL [Suspect]
     Active Substance: NALTREXONE
     Indication: ALCOHOLISM
     Dosage: 380 MG, MONTHLY
     Route: 030
     Dates: start: 20150811, end: 20180105
  2. VIVITROL [Suspect]
     Active Substance: NALTREXONE
     Dosage: 380 MG, MONTHLY
     Route: 030
     Dates: start: 2019
  3. VIVITROL [Suspect]
     Active Substance: NALTREXONE
     Dosage: 380 MG, MONTHLY
     Route: 030
     Dates: start: 20190409, end: 201905
  4. XULTOPHY 100/3.6 [Suspect]
     Active Substance: INSULIN DEGLUDEC\LIRAGLUTIDE
     Indication: TYPE 2 DIABETES MELLITUS
     Dosage: 10 IU, UNK
  5. CLARITIN [GLICLAZIDE] [Concomitant]
     Dosage: UNK
  6. TRULICITY [Concomitant]
     Active Substance: DULAGLUTIDE
  7. VIAGRA [Suspect]
     Active Substance: SILDENAFIL CITRATE
     Indication: ERECTILE DYSFUNCTION
     Dosage: UNK
  8. ANDROGEL [Concomitant]
     Active Substance: TESTOSTERONE
     Dosage: UNK
  9. SINGULAIR [Concomitant]
     Active Substance: MONTELUKAST SODIUM
     Dosage: UNK
  10. ZETIA [Concomitant]
     Active Substance: EZETIMIBE
     Dosage: UNK
  11. PROTONIX [OMEPRAZOLE] [Concomitant]
     Active Substance: OMEPRAZOLE
     Dosage: UNK
  12. NASONEX [Concomitant]
     Active Substance: MOMETASONE FUROATE
     Dosage: UNK
  13. VIVITROL [Suspect]
     Active Substance: NALTREXONE
     Dosage: UNK
     Dates: start: 20180105
  14. ANTABUSE [Concomitant]
     Active Substance: DISULFIRAM
     Dosage: UNK
     Dates: start: 2018, end: 2018
  15. STENDRA [Concomitant]
     Active Substance: AVANAFIL
     Dosage: UNK
  16. INVOKANA [Concomitant]
     Active Substance: CANAGLIFLOZIN
     Dosage: UNK
  17. CIALIS [Concomitant]
     Active Substance: TADALAFIL
  18. BYSTOLIC [Concomitant]
     Active Substance: NEBIVOLOL HYDROCHLORIDE
     Dosage: UNK
  19. ZOLOFT [Concomitant]
     Active Substance: SERTRALINE HYDROCHLORIDE
     Dosage: UNK

REACTIONS (23)
  - Injection site reaction [Not Recovered/Not Resolved]
  - Productive cough [Unknown]
  - Injection site abscess [Not Recovered/Not Resolved]
  - Headache [Unknown]
  - Injection site infection [Not Recovered/Not Resolved]
  - Injection site pain [Not Recovered/Not Resolved]
  - Blood glucose increased [Recovering/Resolving]
  - Erectile dysfunction [Unknown]
  - Alcohol use [Recovered/Resolved]
  - Injection site cellulitis [Not Recovered/Not Resolved]
  - Injection site haemorrhage [Not Recovered/Not Resolved]
  - Injection site swelling [Not Recovered/Not Resolved]
  - Influenza [Recovered/Resolved]
  - Stress [Unknown]
  - Drug ineffective [Unknown]
  - Glycosylated haemoglobin increased [Unknown]
  - Swelling [Unknown]
  - Injection site inflammation [Not Recovered/Not Resolved]
  - Blood thyroid stimulating hormone decreased [Recovered/Resolved]
  - Premature ejaculation [Unknown]
  - Nausea [Recovered/Resolved]
  - Vomiting [Recovered/Resolved]
  - Tenderness [Unknown]

NARRATIVE: CASE EVENT DATE: 201511
